FAERS Safety Report 9009303 (Version 1)
Quarter: 2013Q1

REPORT INFORMATION
  Report Type: Spontaneous
  Country: GR (occurrence: GR)
  Receive Date: 20130111
  Receipt Date: 20130111
  Transmission Date: 20140127
  Serious: Yes (Other)
  Sender: FDA-Public Use
  Company Number: GR-PFIZER INC-2013011127

PATIENT
  Age: 67 Year
  Sex: Female
  Weight: 70 kg

DRUGS (6)
  1. GEMFIBROZIL [Suspect]
     Dosage: 1200 MG/DAY
  2. SIMVASTATIN [Interacting]
     Dosage: 40 MG/DAY
  3. SITAGLIPTIN [Suspect]
     Indication: TYPE 2 DIABETES MELLITUS
     Dosage: 100 MG/DAY
  4. SITAGLIPTIN [Suspect]
     Dosage: 100 MG/DAY
  5. QUINAPRIL [Concomitant]
     Dosage: 20 MG/DAY
  6. ASPIRIN [Concomitant]
     Dosage: 100 MG/DAY

REACTIONS (2)
  - Drug interaction [Unknown]
  - Rhabdomyolysis [Unknown]
